FAERS Safety Report 24069401 (Version 1)
Quarter: 2024Q3

REPORT INFORMATION
  Report Type: Report from Study
  Country: CN (occurrence: CN)
  Receive Date: 20240710
  Receipt Date: 20240710
  Transmission Date: 20241016
  Serious: No
  Sender: ROCHE
  Company Number: CN-ROCHE-3490979

PATIENT
  Age: 67 Year
  Sex: Female
  Weight: 75.0 kg

DRUGS (15)
  1. ALECTINIB [Suspect]
     Active Substance: ALECTINIB
     Indication: Non-small cell lung cancer metastatic
     Route: 048
     Dates: start: 20220412
  2. CODEINE [Concomitant]
     Active Substance: CODEINE
     Route: 048
     Dates: start: 20230107
  3. INDAPAMIDE [Concomitant]
     Active Substance: INDAPAMIDE
     Indication: Hypertension
     Route: 048
     Dates: end: 202304
  4. ACETYLCYSTEINE [Concomitant]
     Active Substance: ACETYLCYSTEINE
     Indication: Pneumonia viral
     Route: 048
     Dates: start: 20230117, end: 202302
  5. ACETYLCYSTEINE [Concomitant]
     Active Substance: ACETYLCYSTEINE
     Indication: COVID-19
  6. COMPOUND PLATYCODON [Concomitant]
     Indication: COVID-19
     Route: 048
     Dates: start: 20230117, end: 202302
  7. COMPOUND PLATYCODON [Concomitant]
     Indication: Pneumonia viral
  8. SPLEEN POLYPEPTIDE [Concomitant]
     Route: 042
     Dates: start: 20230221, end: 20230221
  9. SPLEEN POLYPEPTIDE [Concomitant]
     Route: 042
     Dates: start: 20230222, end: 20230222
  10. DOXOFYLLINE [Concomitant]
     Active Substance: DOXOFYLLINE
     Indication: Pneumonia viral
     Dates: start: 20230223, end: 20230228
  11. BUDESONIDE [Concomitant]
     Active Substance: BUDESONIDE
     Indication: Pneumonia viral
     Dosage: INHALANT
     Route: 050
     Dates: start: 20230223, end: 20230223
  12. BRUCEA JAVANICA [Concomitant]
     Route: 048
     Dates: start: 20221009
  13. BRUCEA JAVANICA [Concomitant]
     Route: 048
     Dates: start: 20230117, end: 202302
  14. ELEMENE [Concomitant]
     Route: 042
     Dates: start: 20230222, end: 20230301
  15. NIFEDIPINE [Concomitant]
     Active Substance: NIFEDIPINE
     Indication: Hypertension
     Route: 048
     Dates: start: 20230224

REACTIONS (1)
  - Platelet count decreased [Recovered/Resolved]

NARRATIVE: CASE EVENT DATE: 20230221
